FAERS Safety Report 6180747-X (Version None)
Quarter: 2009Q2

REPORT INFORMATION
  Report Type: 
  Country: None (occurrence: None)
  Receive Date: 20090506
  Receipt Date: 20090429
  Transmission Date: 20091009
  Serious: Yes (Other)
  Sender: FDA-Public Use
  Company Number: US-PFIZER INC-2005054577

PATIENT
  Sex: Female

DRUGS (5)
  1. PROVERA [Suspect]
     Indication: HORMONE REPLACEMENT THERAPY
     Dosage: UNK
     Route: 048
     Dates: start: 19850101, end: 19940101
  2. PROVERA [Suspect]
     Indication: MENOPAUSAL SYMPTOMS
  3. OGEN [Suspect]
     Indication: HORMONE REPLACEMENT THERAPY
     Dosage: UNK
     Route: 048
     Dates: start: 19850101, end: 19940101
  4. OGEN [Suspect]
     Indication: MENOPAUSAL SYMPTOMS
  5. NORVASC [Concomitant]
     Indication: HYPERTENSION
     Dosage: UNK

REACTIONS (1)
  - BREAST CANCER [None]
